FAERS Safety Report 4766295-X (Version None)
Quarter: 2005Q3

REPORT INFORMATION
  Report Type: 
  Country: None (occurrence: None)
  Receive Date: 20050909
  Receipt Date: 20050830
  Transmission Date: 20060218
  Serious: Yes (Other)
  Sender: FDA-Public Use
  Company Number: 2005S1000213

PATIENT
  Age: 62 Year
  Sex: Male

DRUGS (6)
  1. ACITRETIN (ACITRETIN) [Suspect]
     Dosage: UNKNOWN;UNK;PO
     Route: 048
  2. ACITRETIN (ACITRETIN) [Suspect]
     Dosage: UNKNOWN;UNK;PO
     Route: 048
  3. ETANERCEPT (ETANERCEPT) (25 MG/ML) [Suspect]
     Indication: PSORIATIC ARTHROPATHY
     Dosage: 25 MG;BIW;SC
     Route: 058
     Dates: start: 20050410, end: 20050520
  4. DIFLUNISAL [Concomitant]
  5. BENDROFLUMETHIAZIDE [Concomitant]
  6. RANITIDINE [Concomitant]

REACTIONS (2)
  - CONVULSION [None]
  - EPILEPSY [None]
